FAERS Safety Report 8807533 (Version 1)
Quarter: 2012Q4

REPORT INFORMATION
  Report Type: 
  Country: US (occurrence: US)
  Receive Date: 20120925
  Receipt Date: 20120925
  Transmission Date: 20130627
  Serious: Yes (Hospitalization)
  Sender: FDA-Public Use
  Company Number: US-SANOFI-AVENTIS-2012SA068058

PATIENT
  Age: 36 Year
  Sex: Female
  Weight: 54 kg

DRUGS (5)
  1. AMBIEN [Suspect]
     Indication: SLEEP PROBLEM
     Route: 048
  2. KLONOPIN [Suspect]
     Indication: SLEEP PROBLEM
     Route: 065
  3. SEROQUEL [Suspect]
     Indication: SLEEP PROBLEM
     Route: 065
  4. VENLAFAXINE HYDROCHLORIDE [Suspect]
     Indication: DEPRESSION
     Route: 065
     Dates: start: 200910
  5. VENLAFAXINE HYDROCHLORIDE [Suspect]
     Indication: ANXIETY
     Route: 065
     Dates: start: 200910

REACTIONS (3)
  - Mental disorder [Unknown]
  - Temperature intolerance [Not Recovered/Not Resolved]
  - Memory impairment [Not Recovered/Not Resolved]
